FAERS Safety Report 12848191 (Version 1)
Quarter: 2016Q4

REPORT INFORMATION
  Report Type: Spontaneous
  Country: US (occurrence: US)
  Receive Date: 20161014
  Receipt Date: 20161014
  Transmission Date: 20170207
  Serious: No
  Sender: FDA-Public Use
  Company Number: US-JNJFOC-20160715435

PATIENT
  Age: 83 Year
  Sex: Female
  Weight: 74.84 kg

DRUGS (2)
  1. TYLENOL EXTRA STRENGTH [Suspect]
     Active Substance: ACETAMINOPHEN
     Indication: PROCEDURAL PAIN
     Dosage: 4 CAPLETS DAILY; 2 IN THE MORNING AND 2 IN THE EVENING
     Route: 048
  2. TYLENOL EXTRA STRENGTH [Suspect]
     Active Substance: ACETAMINOPHEN
     Indication: GASTRIC DISORDER
     Dosage: 4 CAPLETS DAILY; 2 IN THE MORNING AND 2 IN THE EVENING
     Route: 048

REACTIONS (4)
  - Product packaging issue [Unknown]
  - Off label use [Unknown]
  - Product use issue [Unknown]
  - Product closure removal difficult [Unknown]
